FAERS Safety Report 25250687 (Version 5)
Quarter: 2025Q4

REPORT INFORMATION
  Report Type: Spontaneous
  Country: JP (occurrence: JP)
  Receive Date: 20250429
  Receipt Date: 20251111
  Transmission Date: 20260117
  Serious: Yes (Death, Life-Threatening, Hospitalization, Disabling, Congenital Anomaly, Other)
  Sender: ALEXION PHARMACEUTICALS
  Company Number: JP-ASTRAZENECA-250026795_012620_P_1

PATIENT
  Age: 81 Year
  Sex: Female
  Weight: 55.3 kg

DRUGS (43)
  1. TRUQAP [Suspect]
     Active Substance: CAPIVASERTIB
     Indication: Breast cancer
     Dosage: ON A 4-DAYS-ON, 3-DAYS-OFF SCHEDULE, WHICH WAS CHANGED DUE TO PD (PLEURAL DISSEMINATION)
     Dates: start: 20250313, end: 20250316
  2. TRUQAP [Suspect]
     Active Substance: CAPIVASERTIB
     Indication: Breast cancer recurrent
  3. FASLODEX [Suspect]
     Active Substance: FULVESTRANT
     Indication: Breast cancer
     Dosage: DOSE UNKNOWN, WHICH WAS CHANGED DUE TO PD (PLEURAL DISSEMINATION)
     Dates: start: 20210929, end: 20240109
  4. FASLODEX [Suspect]
     Active Substance: FULVESTRANT
     Dosage: DOSE UNKNOWN, WHICH WAS CHANGED DUE TO PD (PLEURAL DISSEMINATION)
     Dates: start: 20250313, end: 20250318
  5. JARDIANCE [Concomitant]
     Active Substance: EMPAGLIFLOZIN
     Dosage: DOSE UNKNOWN
     Route: 065
  6. JARDIANCE [Concomitant]
     Active Substance: EMPAGLIFLOZIN
     Dosage: DOSE UNKNOWN
     Route: 065
  7. PREGABALIN [Concomitant]
     Active Substance: PREGABALIN
     Indication: Traumatic pain
  8. PREGABALIN [Concomitant]
     Active Substance: PREGABALIN
  9. METHYLCOBALAMIN [Concomitant]
     Active Substance: METHYLCOBALAMIN
     Indication: Traumatic pain
  10. METHYLCOBALAMIN [Concomitant]
     Active Substance: METHYLCOBALAMIN
  11. METHYLCOBALAMIN [Concomitant]
     Active Substance: METHYLCOBALAMIN
  12. BISOPROLOL FUMARATE [Concomitant]
     Active Substance: BISOPROLOL FUMARATE
     Indication: Hypertension
  13. BISOPROLOL FUMARATE [Concomitant]
     Active Substance: BISOPROLOL FUMARATE
  14. BISOPROLOL FUMARATE [Concomitant]
     Active Substance: BISOPROLOL FUMARATE
  15. TELMISARTAN [Concomitant]
     Active Substance: TELMISARTAN
     Indication: Hypertension
  16. TELMISARTAN [Concomitant]
     Active Substance: TELMISARTAN
  17. TELMISARTAN [Concomitant]
     Active Substance: TELMISARTAN
  18. AMLODIPINE [Concomitant]
     Active Substance: AMLODIPINE BESYLATE
     Indication: Hypertension
  19. AMLODIPINE [Concomitant]
     Active Substance: AMLODIPINE BESYLATE
  20. ROSUVASTATIN [Concomitant]
     Active Substance: ROSUVASTATIN
     Indication: Hypertension
  21. ROSUVASTATIN [Concomitant]
     Active Substance: ROSUVASTATIN
  22. BELSOMRA [Concomitant]
     Active Substance: SUVOREXANT
     Indication: Insomnia
  23. BELSOMRA [Concomitant]
     Active Substance: SUVOREXANT
     Indication: Insomnia
  24. BELSOMRA [Concomitant]
     Active Substance: SUVOREXANT
  25. ANASTROZOLE [Concomitant]
     Active Substance: ANASTROZOLE
     Indication: Breast cancer
     Dosage: DOSE UNKNOWN, WHICH WAS CHANGED DUE TO PD (PLEURAL DISSEMINATION)
     Route: 065
  26. DENOSUMAB [Concomitant]
     Active Substance: DENOSUMAB
     Indication: Breast cancer
     Dosage: DOSE UNKNOWN, WHICH WAS CHANGED DUE TO PD (PLEURAL DISSEMINATION)
     Route: 065
  27. INVEGA [Concomitant]
     Active Substance: PALIPERIDONE
     Indication: Breast cancer
     Dosage: DOSE UNKNOWN, WHICH WAS CHANGED DUE TO PD (PLEURAL DISSEMINATION)
     Route: 065
  28. DICLOFENAC SODIUM [Concomitant]
     Active Substance: DICLOFENAC SODIUM
  29. POTASSIUM ASPARTATE [Concomitant]
     Active Substance: POTASSIUM ASPARTATE
  30. ACETAMINOPHEN [Concomitant]
     Active Substance: ACETAMINOPHEN
  31. AMLODIPINE [Concomitant]
     Active Substance: AMLODIPINE BESYLATE
  32. ICOSAPENT ETHYL [Concomitant]
     Active Substance: ICOSAPENT ETHYL
  33. EURAX [Concomitant]
     Active Substance: CROTAMITON
  34. SHAKUYAKUKANZOTO [Concomitant]
     Active Substance: HERBALS
  35. PREGABALIN [Concomitant]
     Active Substance: PREGABALIN
  36. MOUNJARO [Concomitant]
     Active Substance: TIRZEPATIDE
  37. ROSUVASTATIN CALCIUM [Concomitant]
     Active Substance: ROSUVASTATIN CALCIUM
  38. INSULIN LISPRO [Concomitant]
     Active Substance: INSULIN LISPRO
  39. INSULIN GLARGINE [Concomitant]
     Active Substance: INSULIN GLARGINE
  40. METOCLOPRAMIDE [Concomitant]
     Active Substance: METOCLOPRAMIDE
  41. LOPERAMIDE HYDROCHLORIDE [Concomitant]
     Active Substance: LOPERAMIDE HYDROCHLORIDE
  42. HUMULIN R [Concomitant]
     Active Substance: INSULIN HUMAN
  43. DENOSUMAB [Concomitant]
     Active Substance: DENOSUMAB

REACTIONS (22)
  - Death [Fatal]
  - Cerebral infarction [Not Recovered/Not Resolved]
  - Cerebral infarction [Unknown]
  - Atrial fibrillation [Unknown]
  - Gastrointestinal haemorrhage [Unknown]
  - Renal impairment [Recovered/Resolved with Sequelae]
  - Bacteraemia [Unknown]
  - Hyperkalaemia [Unknown]
  - Hyperglycaemia [Recovered/Resolved]
  - Performance status decreased [Unknown]
  - Dehydration [Unknown]
  - Anaemia [Unknown]
  - Hypoglycaemia [Unknown]
  - Pyelonephritis [Unknown]
  - Sepsis [Unknown]
  - Pain in extremity [Unknown]
  - Feeding disorder [Unknown]
  - Hyperglycaemia [Unknown]
  - Blood pressure decreased [Unknown]
  - Urine output decreased [Unknown]
  - Somnolence [Unknown]
  - Electrocardiogram T wave abnormal [Unknown]

NARRATIVE: CASE EVENT DATE: 20250101
